FAERS Safety Report 4534758-8 (Version None)
Quarter: 2004Q4

REPORT INFORMATION
  Report Type: 
  Country: None (occurrence: None)
  Receive Date: 20041222
  Receipt Date: 20040202
  Transmission Date: 20050328
  Serious: No
  Sender: FDA-Public Use
  Company Number: US-BRISTOL-MYERS SQUIBB COMPANY-12493631

PATIENT
  Age: 76 Year
  Sex: Male
  Weight: 86 kg

DRUGS (6)
  1. PRAVACHOL [Suspect]
     Indication: BLOOD CHOLESTEROL INCREASED
     Route: 048
     Dates: start: 20031027, end: 20040106
  2. CLARINEX [Concomitant]
  3. FLONASE [Concomitant]
  4. ATROVENT [Concomitant]
  5. HYTRIN [Concomitant]
  6. ASPIRIN [Concomitant]

REACTIONS (5)
  - ABDOMINAL PAIN [None]
  - ASTHENIA [None]
  - FATIGUE [None]
  - MYALGIA [None]
  - PYREXIA [None]
